FAERS Safety Report 7218362-9 (Version None)
Quarter: 2011Q1

REPORT INFORMATION
  Report Type: 
  Country: None (occurrence: None)
  Receive Date: 20110110
  Receipt Date: 20101231
  Transmission Date: 20110831
  Serious: Yes (Hospitalization)
  Sender: FDA-Public Use
  Company Number: PHHO2010FR19821

PATIENT
  Sex: Male
  Weight: 64 kg

DRUGS (7)
  1. CERTICAN [Suspect]
     Indication: RENAL TRANSPLANT
     Dosage: 2 MG DAILY
     Route: 048
     Dates: start: 20100605
  2. NEXIUM [Suspect]
     Dosage: 20
     Route: 048
     Dates: start: 20100607
  3. CARDENSIEL [Suspect]
     Dosage: 10 MG
     Route: 048
  4. AMLOC [Suspect]
     Dosage: 5 MG
     Route: 048
     Dates: start: 20100601
  5. LASIX [Suspect]
     Dosage: 10 MG
     Route: 048
     Dates: start: 20100712
  6. CELLCEPT [Suspect]
     Indication: RENAL TRANSPLANT
     Dosage: 1.5 G DAILY
     Route: 048
     Dates: start: 20100531
  7. CORTANCYL [Suspect]
     Indication: RENAL TRANSPLANT
     Dosage: 5 MG DAILY
     Route: 048
     Dates: start: 20100605

REACTIONS (6)
  - PNEUMOCYSTIS JIROVECI INFECTION [None]
  - PLEURISY [None]
  - LUNG DISORDER [None]
  - STAPHYLOCOCCAL INFECTION [None]
  - THORACIC CAVITY DRAINAGE [None]
  - DYSPNOEA [None]
